FAERS Safety Report 7290544-X (Version None)
Quarter: 2011Q1

REPORT INFORMATION
  Report Type: 
  Country: None (occurrence: None)
  Receive Date: 20110214
  Receipt Date: 20110203
  Transmission Date: 20110831
  Serious: Yes (Other)
  Sender: FDA-Public Use
  Company Number: US-PFIZER INC-2011025408

PATIENT
  Sex: Male

DRUGS (2)
  1. IBUPROFEN (ADVIL) [Suspect]
     Indication: PYREXIA
     Dosage: UNK HALF TEASPOON
     Route: 048
     Dates: start: 20110203
  2. TYLENOL [Concomitant]

REACTIONS (2)
  - SWELLING FACE [None]
  - RASH GENERALISED [None]
